FAERS Safety Report 6480362-4 (Version None)
Quarter: 2009Q4

REPORT INFORMATION
  Report Type: 
  Country: None (occurrence: None)
  Receive Date: 20091208
  Receipt Date: 20091126
  Transmission Date: 20100525
  Serious: Yes (Other)
  Sender: FDA-Public Use
  Company Number: ES-JNJFOC-20091201009

PATIENT
  Age: 34 Year
  Sex: Female

DRUGS (1)
  1. REMICADE [Suspect]
     Indication: RHEUMATOID ARTHRITIS
     Dates: start: 20020308, end: 20030525

REACTIONS (4)
  - ANXIETY [None]
  - CHEST DISCOMFORT [None]
  - INFUSION RELATED REACTION [None]
  - TACHYCARDIA [None]
